FAERS Safety Report 25110572 (Version 1)
Quarter: 2025Q1

REPORT INFORMATION
  Report Type: Spontaneous
  Country: BE (occurrence: BE)
  Receive Date: 20250324
  Receipt Date: 20250324
  Transmission Date: 20250409
  Serious: Yes (Death, Life-Threatening, Hospitalization, Other)
  Sender: GLAXOSMITHKLINE
  Company Number: BE-GSK-BE2025GSK033889

PATIENT

DRUGS (6)
  1. SUMATRIPTAN [Suspect]
     Active Substance: SUMATRIPTAN
     Indication: Migraine
     Route: 048
  2. SUMATRIPTAN [Suspect]
     Active Substance: SUMATRIPTAN
     Route: 048
  3. VALPROIC ACID [Concomitant]
     Active Substance: VALPROIC ACID
     Indication: Product used for unknown indication
  4. PAROXETINE [Concomitant]
     Active Substance: PAROXETINE
     Indication: Product used for unknown indication
  5. LORAZEPAM [Concomitant]
     Active Substance: LORAZEPAM
     Indication: Product used for unknown indication
  6. CLOTHIAPINE [Concomitant]
     Active Substance: CLOTHIAPINE
     Indication: Product used for unknown indication

REACTIONS (16)
  - Arteriospasm coronary [Fatal]
  - Multiple organ dysfunction syndrome [Fatal]
  - Cardiac arrest [Fatal]
  - Ventricular fibrillation [Fatal]
  - Cardiogenic shock [Fatal]
  - Distributive shock [Fatal]
  - Arrhythmic storm [Fatal]
  - Angina unstable [Unknown]
  - Syncope [Recovering/Resolving]
  - Ventricular tachycardia [Unknown]
  - Acute myocardial infarction [Unknown]
  - Cardiomyopathy [Unknown]
  - Ventricular hypokinesia [Unknown]
  - Myocardial hypoperfusion [Unknown]
  - Akinesia [Unknown]
  - Self-medication [Unknown]
